FAERS Safety Report 25666259 (Version 1)
Quarter: 2025Q3

REPORT INFORMATION
  Report Type: Spontaneous
  Country: US (occurrence: US)
  Receive Date: 20250811
  Receipt Date: 20250811
  Transmission Date: 20251021
  Serious: Yes (Death, Other)
  Sender: SANOFI AVENTIS
  Company Number: US-SA-2025SA209101

PATIENT
  Age: 69 Year
  Sex: Male
  Weight: 65.77 kg

DRUGS (19)
  1. DUPIXENT [Suspect]
     Active Substance: DUPILUMAB
     Indication: Asthma
     Route: 058
     Dates: start: 20250520, end: 20250520
  2. DUPIXENT [Suspect]
     Active Substance: DUPILUMAB
     Dosage: 300 MG, QOW
     Route: 058
     Dates: start: 202506
  3. ALBUTEROL SULFATE [Concomitant]
     Active Substance: ALBUTEROL SULFATE
  4. TRELEGY ELLIPTA [Concomitant]
     Active Substance: FLUTICASONE FUROATE\UMECLIDINIUM BROMIDE\VILANTEROL TRIFENATATE
  5. STOOL SOFTENER (DOCUSATE) [Concomitant]
     Active Substance: DOCUSATE
  6. AZELASTINE HYDROCHLORIDE [Concomitant]
     Active Substance: AZELASTINE HYDROCHLORIDE
  7. VITAMINS NOS [Concomitant]
     Active Substance: VITAMINS
  8. ATROVENT HFA [Concomitant]
     Active Substance: IPRATROPIUM BROMIDE
  9. ELIQUIS [Concomitant]
     Active Substance: APIXABAN
  10. TRAMADOL HCL [Concomitant]
     Active Substance: TRAMADOL HYDROCHLORIDE
  11. SOTALOL [Concomitant]
     Active Substance: SOTALOL
  12. TAMSULOSIN HYDROCHLORIDE [Concomitant]
     Active Substance: TAMSULOSIN HYDROCHLORIDE
  13. OMEPRAZOLE [Concomitant]
     Active Substance: OMEPRAZOLE
  14. LOSARTAN POTASSIUM [Concomitant]
     Active Substance: LOSARTAN POTASSIUM
  15. PREDNISONE [Concomitant]
     Active Substance: PREDNISONE
  16. TYLENOL [Concomitant]
     Active Substance: ACETAMINOPHEN
  17. OXYGEN [Concomitant]
     Active Substance: OXYGEN
  18. FUROSEMIDE [Concomitant]
     Active Substance: FUROSEMIDE
  19. SILDENAFIL [Concomitant]
     Active Substance: SILDENAFIL

REACTIONS (2)
  - Death [Fatal]
  - Pulmonary mass [Unknown]

NARRATIVE: CASE EVENT DATE: 20250529
